FAERS Safety Report 4775750-8 (Version None)
Quarter: 2005Q3

REPORT INFORMATION
  Report Type: 
  Country: None (occurrence: None)
  Receive Date: 20050922
  Receipt Date: 20050428
  Transmission Date: 20060218
  Serious: Yes (Hospitalization, Disabling, Other)
  Sender: FDA-Public Use
  Company Number: PHNU2005DE01790

PATIENT
  Sex: Female
  Weight: 80 kg

DRUGS (2)
  1. CLOZARIL [Suspect]
     Indication: SCHIZOAFFECTIVE DISORDER
     Dosage: 25 MG/DAY
     Route: 048
     Dates: start: 19900101
  2. EUTHYROX [Concomitant]
     Indication: HYPOTHYROIDISM
     Dosage: 100 A?G/D
     Route: 048

REACTIONS (3)
  - CEREBRAL ARTERY OCCLUSION [None]
  - CONSTIPATION [None]
  - CONVULSION [None]
